FAERS Safety Report 15606900 (Version 3)
Quarter: 2018Q4

REPORT INFORMATION
  Report Type: Spontaneous
  Country: US (occurrence: US)
  Receive Date: 20181112
  Receipt Date: 20181217
  Transmission Date: 20190205
  Serious: Yes (Hospitalization, Other)
  Sender: FDA-Public Use
  Company Number: US-SHIRE-US201843659

PATIENT
  Sex: Male

DRUGS (1)
  1. ELAPRASE [Suspect]
     Active Substance: IDURSULFASE
     Indication: MUCOPOLYSACCHARIDOSIS II
     Dosage: 18 MG, UNK
     Route: 065

REACTIONS (5)
  - Respiratory failure [Unknown]
  - Swelling [Unknown]
  - Lower respiratory tract congestion [Unknown]
  - Pneumonia [Unknown]
  - Sympathetic nerve injury [Unknown]
